FAERS Safety Report 8874654 (Version 2)
Quarter: 2013Q1

REPORT INFORMATION
  Report Type: Report from Study
  Country: JP (occurrence: JP)
  Receive Date: 20121023
  Receipt Date: 20130102
  Transmission Date: 20140127
  Serious: Yes (Hospitalization)
  Sender: FDA-Public Use
  Company Number: JP-AMGEN-JPNCT2012067522

PATIENT
  Age: 85 Year
  Sex: Female
  Weight: 54 kg

DRUGS (7)
  1. DARBEPOETIN ALFA [Suspect]
     Indication: NEPHROGENIC ANAEMIA
     Dosage: 30 MUG, QD
     Route: 058
     Dates: start: 20111206, end: 20120313
  2. WARFARIN [Concomitant]
     Indication: NEPHROSCLEROSIS
     Route: 048
  3. VASOLAN [Concomitant]
     Indication: NEPHROSCLEROSIS
  4. JUSO [Concomitant]
     Indication: NEPHROSCLEROSIS
     Route: 048
  5. DEPAS [Concomitant]
     Route: 048
  6. PURSENNID [Concomitant]
     Route: 048
  7. IDOMETHINE [Concomitant]
     Route: 061

REACTIONS (1)
  - Wernicke^s encephalopathy [Recovering/Resolving]
